FAERS Safety Report 14073896 (Version 1)
Quarter: 2017Q4

REPORT INFORMATION
  Report Type: Spontaneous
  Country: JP (occurrence: JP)
  Receive Date: 20171011
  Receipt Date: 20171011
  Transmission Date: 20180321
  Serious: Yes (Hospitalization, Other)
  Sender: FDA-Public Use
  Company Number: JP-PFIZER INC-2017436531

PATIENT
  Age: 61 Year
  Sex: Male
  Weight: 72 kg

DRUGS (1)
  1. LYRICA [Suspect]
     Active Substance: PREGABALIN
     Indication: NEURALGIA
     Route: 048

REACTIONS (8)
  - Autoimmune hepatitis [Recovered/Resolved]
  - Micturition disorder [Unknown]
  - Altered state of consciousness [Unknown]
  - Restlessness [Unknown]
  - Pyrexia [Unknown]
  - Malaise [Unknown]
  - Biliary cirrhosis primary [Unknown]
  - Delirium [Unknown]

NARRATIVE: CASE EVENT DATE: 2017
